FAERS Safety Report 6528740-9 (Version None)
Quarter: 2009Q4

REPORT INFORMATION
  Report Type: 
  Country: None (occurrence: None)
  Receive Date: 20091231
  Receipt Date: 20091215
  Transmission Date: 20100525
  Serious: Yes (Hospitalization)
  Sender: FDA-Public Use
  Company Number: 2008AL000073

PATIENT
  Age: 55 Year
  Sex: Male

DRUGS (8)
  1. GABAPENTIN [Suspect]
     Indication: PAIN
     Dosage: 300 MG;QD;UNK
  2. PREGABALIN [Concomitant]
  3. PREGABALIN [Concomitant]
  4. RAMIPRIL [Concomitant]
  5. NIFEDIPINE [Concomitant]
  6. EPREX [Concomitant]
  7. ALFACALCIDOL [Concomitant]
  8. SEVELAMER [Concomitant]

REACTIONS (4)
  - DIALYSIS [None]
  - NAUSEA [None]
  - RENAL DISORDER [None]
  - RENAL TRANSPLANT [None]
